FAERS Safety Report 7731152-3 (Version None)
Quarter: 2011Q3

REPORT INFORMATION
  Report Type: 
  Country: None (occurrence: None)
  Receive Date: 20110906
  Receipt Date: 20110906
  Transmission Date: 20111222
  Serious: Yes (Hospitalization)
  Sender: FDA-Public Use
  Company Number: None

PATIENT
  Age: 73 Year
  Sex: Female
  Weight: 78.017 kg

DRUGS (1)
  1. ENBREL [Suspect]
     Dosage: 50 MG
     Route: 048
     Dates: start: 20110725, end: 20110808

REACTIONS (5)
  - BLOOD PRESSURE INCREASED [None]
  - OEDEMA PERIPHERAL [None]
  - MUSCULOSKELETAL PAIN [None]
  - NECK PAIN [None]
  - PYREXIA [None]
